FAERS Safety Report 9313349 (Version 1)
Quarter: 2013Q2

REPORT INFORMATION
  Report Type: Spontaneous
  Country: US (occurrence: US)
  Receive Date: 20130528
  Receipt Date: 20130528
  Transmission Date: 20140414
  Serious: No
  Sender: FDA-Public Use
  Company Number: US-ABBOTT-13P-163-1066114-00

PATIENT
  Age: 63 Year
  Sex: Male
  Weight: 104.42 kg

DRUGS (11)
  1. ANDROGEL [Suspect]
     Indication: BLOOD TESTOSTERONE DECREASED
     Dosage: 2 PUMPS
     Route: 061
     Dates: start: 201303
  2. NEFAZODONE [Concomitant]
     Indication: PANIC ATTACK
     Dosage: UNKNOWN
  3. NEFAZODONE [Concomitant]
     Indication: STRESS
  4. CLONAZEPAM [Concomitant]
     Indication: PANIC ATTACK
     Dosage: UNKNOWN
  5. CLONAZEPAM [Concomitant]
     Indication: STRESS
  6. GABAPENTIN [Concomitant]
     Indication: NEUROPATHY PERIPHERAL
     Dosage: UNKNOWN
  7. PANTOPRAZOLE [Concomitant]
     Indication: GASTROOESOPHAGEAL REFLUX DISEASE
     Dosage: UNKNOWN
  8. SIMVASTATIN [Concomitant]
     Indication: BLOOD CHOLESTEROL INCREASED
     Dosage: UNKNOWN
  9. LISINOPRIL [Concomitant]
     Indication: HYPERTENSION
     Dosage: UNKNOWN
  10. NOVOLOG [Concomitant]
     Indication: DIABETES MELLITUS
     Dosage: UNKNOWN
  11. LANTUS [Concomitant]
     Indication: DIABETES MELLITUS
     Dosage: UNKNOWN

REACTIONS (2)
  - Application site pain [Not Recovered/Not Resolved]
  - Application site pruritus [Not Recovered/Not Resolved]
